FAERS Safety Report 15346974 (Version 1)
Quarter: 2018Q3

REPORT INFORMATION
  Report Type: Spontaneous
  Country: US (occurrence: US)
  Receive Date: 20180904
  Receipt Date: 20180904
  Transmission Date: 20181010
  Serious: Yes (Other)
  Sender: FDA-Public Use
  Company Number: US-ALKEM LABORATORIES LIMITED-US-ALKEM-2018-07106

PATIENT
  Age: 5 Year
  Sex: Male

DRUGS (2)
  1. MYCOPHENOLATE MOFETIL. [Suspect]
     Active Substance: MYCOPHENOLATE MOFETIL
     Indication: PROPHYLAXIS AGAINST GRAFT VERSUS HOST DISEASE
     Dosage: UNK
     Route: 065
  2. TACROLIMUS. [Suspect]
     Active Substance: TACROLIMUS
     Indication: PROPHYLAXIS AGAINST GRAFT VERSUS HOST DISEASE
     Dosage: UNK
     Route: 065

REACTIONS (13)
  - Enterocolitis viral [Recovered/Resolved]
  - Adenovirus infection [Recovered/Resolved]
  - Escherichia infection [Unknown]
  - Cytomegalovirus viraemia [Recovered/Resolved]
  - Respiratory syncytial virus infection [Recovered/Resolved]
  - Pneumatosis intestinalis [Unknown]
  - Epstein-Barr virus infection [Unknown]
  - Human herpesvirus 6 infection [Recovered/Resolved]
  - Cellulitis [Unknown]
  - Viraemia [Recovered/Resolved]
  - Disease recurrence [Unknown]
  - Drug ineffective [Unknown]
  - Septic shock [Unknown]
